FAERS Safety Report 9334251 (Version 1)
Quarter: 2013Q2

REPORT INFORMATION
  Report Type: Spontaneous
  Country: US (occurrence: US)
  Receive Date: 20130606
  Receipt Date: 20130606
  Transmission Date: 20140414
  Serious: No
  Sender: FDA-Public Use
  Company Number: US-AMGEN-USASP2013017689

PATIENT
  Age: 73 Year
  Sex: Female

DRUGS (6)
  1. PROLIA [Suspect]
     Indication: OSTEOPOROSIS POSTMENOPAUSAL
     Dosage: UNK
     Dates: start: 201209
  2. LORAZEPAM [Concomitant]
  3. BYSTOLIC [Concomitant]
  4. CALCIUM WITH VITAMIN D             /00944201/ [Concomitant]
  5. VITAMIN D                          /00107901/ [Concomitant]
  6. IBUPROFEN [Concomitant]

REACTIONS (8)
  - Temporomandibular joint syndrome [Unknown]
  - Tooth disorder [Unknown]
  - Pyrexia [Recovered/Resolved]
  - Nasopharyngitis [Unknown]
  - Sinus congestion [Recovering/Resolving]
  - Skeletal injury [Recovering/Resolving]
  - Contusion [Recovering/Resolving]
  - Cough [Unknown]
